FAERS Safety Report 6116685-8 (Version None)
Quarter: 2009Q1

REPORT INFORMATION
  Report Type: 
  Country: None (occurrence: None)
  Receive Date: 20090314
  Receipt Date: 20081204
  Transmission Date: 20090719
  Serious: No
  Sender: FDA-Public Use
  Company Number: US-ABBOTT-08P-163-0491317-00

PATIENT
  Sex: Male
  Weight: 89.892 kg

DRUGS (3)
  1. HUMIRA [Suspect]
     Indication: PSORIATIC ARTHROPATHY
     Dosage: ONE SHOT
     Route: 058
     Dates: start: 20081126
  2. DIOVAN HCT [Concomitant]
     Indication: BLOOD PRESSURE
     Dosage: 160-12.5 MG
  3. OMEPRAZOLE MAGNESIUM [Concomitant]
     Indication: GASTRIC ULCER

REACTIONS (3)
  - LOWER RESPIRATORY TRACT INFECTION [None]
  - OROPHARYNGEAL PAIN [None]
  - SINUS CONGESTION [None]
